FAERS Safety Report 4271224-1 (Version None)
Quarter: 2004Q1

REPORT INFORMATION
  Report Type: 
  Country: None (occurrence: None)
  Receive Date: 20040113
  Receipt Date: 20031229
  Transmission Date: 20041129
  Serious: Yes (Disabling)
  Sender: FDA-Public Use
  Company Number: A02200303317

PATIENT
  Age: 60 Year
  Sex: Female

DRUGS (2)
  1. ELOXATIN [Suspect]
     Indication: COLON CANCER METASTATIC
     Dosage: 100 MG/M2, OTHER, INTRAVENOUS NOS
     Route: 042
     Dates: start: 20031116, end: 20031116
  2. FLUOROURACIL [Concomitant]

REACTIONS (1)
  - WERNICKE'S ENCEPHALOPATHY [None]
